FAERS Safety Report 13831154 (Version 1)
Quarter: 2017Q3

REPORT INFORMATION
  Report Type: Spontaneous
  Country: US (occurrence: US)
  Receive Date: 20170803
  Receipt Date: 20170803
  Transmission Date: 20171127
  Serious: No
  Sender: FDA-Public Use
  Company Number: US-EGALET US INC-US-2017EGA000599

PATIENT

DRUGS (1)
  1. ARYMO ER [Suspect]
     Active Substance: MORPHINE SULFATE
     Indication: PAIN
     Dosage: 15MG Q12H
     Route: 048
     Dates: start: 20170530, end: 20170612

REACTIONS (3)
  - Malaise [Unknown]
  - Drug ineffective [Unknown]
  - Abdominal pain upper [Unknown]
